FAERS Safety Report 7298207-1 (Version None)
Quarter: 2011Q1

REPORT INFORMATION
  Report Type: 
  Country: None (occurrence: None)
  Receive Date: 20110214
  Receipt Date: 20110214
  Transmission Date: 20110831
  Serious: Yes (Life-Threatening, Other)
  Sender: FDA-Public Use
  Company Number: None

PATIENT
  Age: 54 Year
  Sex: Male
  Weight: 81.6475 kg

DRUGS (2)
  1. AMARYL [Suspect]
     Indication: DIABETES MELLITUS
     Dosage: 2 MG TWICE A DAY PO
     Route: 048
     Dates: start: 20100202, end: 20101128
  2. BYETTA [Suspect]
     Indication: DIABETES MELLITUS
     Dosage: 5 MCG ONCE ADAY IM
     Route: 030
     Dates: start: 20101128, end: 20101128

REACTIONS (3)
  - DIZZINESS [None]
  - HYPOGLYCAEMIA [None]
  - HUNGER [None]
